FAERS Safety Report 16726991 (Version 3)
Quarter: 2019Q4

REPORT INFORMATION
  Report Type: Spontaneous
  Country: US (occurrence: US)
  Receive Date: 20190821
  Receipt Date: 20191018
  Transmission Date: 20200122
  Serious: No
  Sender: FDA-Public Use
  Company Number: US-009507513-1908USA007600

PATIENT
  Age: 78 Year
  Sex: Female

DRUGS (2)
  1. DULERA [Suspect]
     Active Substance: FORMOTEROL FUMARATE DIHYDRATE\MOMETASONE FUROATE
     Dosage: 2 INHALATIONS TWICE DAILY
     Route: 055
     Dates: start: 20190719, end: 20190812
  2. DULERA [Suspect]
     Active Substance: FORMOTEROL FUMARATE DIHYDRATE\MOMETASONE FUROATE
     Indication: ASTHMA
     Dosage: 2 INHALATIONS TWICE DAILY
     Route: 055
     Dates: start: 2010

REACTIONS (6)
  - Inappropriate schedule of product administration [Unknown]
  - Lower respiratory tract congestion [Recovering/Resolving]
  - Dyspnoea [Recovering/Resolving]
  - Product dose omission [Unknown]
  - Product taste abnormal [Unknown]
  - Poor quality device used [Unknown]

NARRATIVE: CASE EVENT DATE: 20190719
